FAERS Safety Report 20980430 (Version 3)
Quarter: 2022Q3

REPORT INFORMATION
  Report Type: Report from Study
  Country: MX (occurrence: MX)
  Receive Date: 20220620
  Receipt Date: 20220719
  Transmission Date: 20221027
  Serious: Yes (Other)
  Sender: FDA-Public Use
  Company Number: MX-NOVARTISPH-NVSC2022MX140328

PATIENT
  Sex: Female
  Weight: 70 kg

DRUGS (2)
  1. EXFORGE HCT [Suspect]
     Active Substance: AMLODIPINE BESYLATE\HYDROCHLOROTHIAZIDE\VALSARTAN
     Indication: Hypertension
     Dosage: UNK 10/25/320 MG
     Route: 048
     Dates: start: 2021, end: 202206
  2. EXFORGE HCT [Suspect]
     Active Substance: AMLODIPINE BESYLATE\HYDROCHLOROTHIAZIDE\VALSARTAN
     Dosage: UNK
     Route: 065

REACTIONS (6)
  - Cerebral disorder [Not Recovered/Not Resolved]
  - Cerebral infarction [Unknown]
  - Neuropathy peripheral [Not Recovered/Not Resolved]
  - Renal impairment [Unknown]
  - Blood pressure decreased [Recovered/Resolved]
  - Illness [Unknown]

NARRATIVE: CASE EVENT DATE: 20220101
